FAERS Safety Report 8016530-X (Version None)
Quarter: 2011Q4

REPORT INFORMATION
  Report Type: 
  Country: None (occurrence: None)
  Receive Date: 20111230
  Receipt Date: 20111221
  Transmission Date: 20120403
  Serious: Yes (Other)
  Sender: FDA-Public Use
  Company Number: US-ASTRAZENECA-2011SE77766

PATIENT
  Age: 63 Year

DRUGS (28)
  1. VIT C [Concomitant]
  2. FUROSEMIDE [Concomitant]
  3. TIZANIDINE HCL [Concomitant]
  4. BACLOFEN [Concomitant]
     Dosage: 10 MG BID PRN
  5. CARVEDILOL [Concomitant]
  6. MELATONI B12 [Concomitant]
     Route: 060
  7. SPIRONOLACTONE [Concomitant]
  8. OXYCODONE HCL [Concomitant]
  9. IPRATROPIUM BROMIDE [Concomitant]
     Dosage: 03% 2 SPRAY IN EACH NOSTRILS BID
  10. MAGNESIUM [Concomitant]
  11. LOVAZA [Concomitant]
  12. POLYETHYLONE GLYCON [Concomitant]
     Dosage: 7 GM POWDER IN H2O
  13. ALPRAZOLAM [Concomitant]
     Dosage: 1 MG PRN
  14. TRAZODONE HCL [Concomitant]
  15. OMEPRAZOLE [Concomitant]
  16. PROAIR HFA [Concomitant]
     Dosage: TWO PUFF PRN
  17. MULTIVITAMINS WITH IRON [Concomitant]
  18. CALCIUM ACETATE [Concomitant]
  19. PROBIOTIC LACTOBACILLUS ACID [Concomitant]
  20. DEXMEDETOMIDINE HYDROCHLORIDE [Concomitant]
     Dosage: 4, PRN
  21. GABAPENTIN [Concomitant]
  22. METHADONE HCL [Concomitant]
  23. CYMBALTA [Concomitant]
  24. LISINOPRIL [Suspect]
     Route: 048
  25. BUTALBITAL/APAP/CAFF [Concomitant]
     Dosage: 50/500/40 OF SIX PRN
  26. LEVOTHYROXINE SODIUM [Concomitant]
  27. FLUOCINON [Concomitant]
     Dosage: 1/2-1 GM BID X 5 DAYS MORNING
  28. LOW BLOOD SUGAR [Concomitant]

REACTIONS (2)
  - DRUG HYPERSENSITIVITY [None]
  - RENAL FAILURE [None]
